FAERS Safety Report 25317677 (Version 1)
Quarter: 2025Q2

REPORT INFORMATION
  Report Type: Spontaneous
  Country: IT (occurrence: IT)
  Receive Date: 20250515
  Receipt Date: 20250515
  Transmission Date: 20250716
  Serious: No
  Sender: ALKEM
  Company Number: IT-ALKEM LABORATORIES LIMITED-IT-ALKEM-2024-16397

PATIENT
  Age: 30 Year
  Sex: Female

DRUGS (10)
  1. AZATHIOPRINE [Suspect]
     Active Substance: AZATHIOPRINE
     Indication: Myasthenia gravis
     Route: 065
  2. AZATHIOPRINE [Suspect]
     Active Substance: AZATHIOPRINE
     Route: 065
  3. AZATHIOPRINE [Suspect]
     Active Substance: AZATHIOPRINE
     Route: 065
  4. AZATHIOPRINE [Suspect]
     Active Substance: AZATHIOPRINE
     Route: 065
  5. PYRIDOSTIGMINE BROMIDE [Suspect]
     Active Substance: PYRIDOSTIGMINE BROMIDE
     Indication: Myasthenia gravis
     Route: 065
  6. PYRIDOSTIGMINE BROMIDE [Suspect]
     Active Substance: PYRIDOSTIGMINE BROMIDE
     Route: 065
  7. PREDNISONE [Suspect]
     Active Substance: PREDNISONE
     Indication: Myasthenia gravis
     Route: 065
  8. PREDNISONE [Suspect]
     Active Substance: PREDNISONE
     Route: 065
  9. PREDNISONE [Suspect]
     Active Substance: PREDNISONE
     Route: 065
  10. PREDNISONE [Suspect]
     Active Substance: PREDNISONE
     Route: 065

REACTIONS (16)
  - Cough [Unknown]
  - Dyspnoea [Unknown]
  - Sensory disturbance [Unknown]
  - Thirst [Unknown]
  - Erythema [Unknown]
  - Dyspepsia [Unknown]
  - Weight decreased [Unknown]
  - Headache [Unknown]
  - Palpitations [Unknown]
  - Malaise [Unknown]
  - Abdominal pain upper [Unknown]
  - Alopecia [Unknown]
  - Arthralgia [Unknown]
  - Infection [Unknown]
  - Fungal infection [Unknown]
  - Vomiting [Unknown]
